FAERS Safety Report 6836513-2 (Version None)
Quarter: 2010Q3

REPORT INFORMATION
  Report Type: 
  Country: None (occurrence: None)
  Receive Date: 20100713
  Receipt Date: 20100708
  Transmission Date: 20110219
  Serious: Yes (Hospitalization)
  Sender: FDA-Public Use
  Company Number: KR-ABBOTT-10P-090-0654606-00

PATIENT
  Age: 55 Year
  Sex: Male

DRUGS (1)
  1. HUMIRA [Suspect]
     Indication: ANKYLOSING SPONDYLITIS
     Dates: start: 20100604

REACTIONS (6)
  - ARTHRALGIA [None]
  - ENTERITIS [None]
  - HYPERTENSION [None]
  - HYPERTHERMIA [None]
  - OEDEMA PERIPHERAL [None]
  - TYPE IV HYPERSENSITIVITY REACTION [None]
